FAERS Safety Report 22383957 (Version 1)
Quarter: 2023Q2

REPORT INFORMATION
  Report Type: Spontaneous
  Country: GT (occurrence: GT)
  Receive Date: 20230530
  Receipt Date: 20230530
  Transmission Date: 20230721
  Serious: Yes (Death)
  Sender: FDA-Public Use
  Company Number: GT-ELI_LILLY_AND_COMPANY-GT202305015156

PATIENT
  Sex: Female

DRUGS (1)
  1. VERZENIO [Suspect]
     Active Substance: ABEMACICLIB
     Indication: Breast cancer metastatic
     Dosage: 150 MG, BID
     Route: 048

REACTIONS (1)
  - Death [Fatal]
